FAERS Safety Report 5891827-8 (Version None)
Quarter: 2008Q3

REPORT INFORMATION
  Report Type: 
  Country: None (occurrence: None)
  Receive Date: 20080922
  Receipt Date: 20080910
  Transmission Date: 20090109
  Serious: Yes (Other)
  Sender: FDA-Public Use
  Company Number: US-PFIZER INC-2008076176

PATIENT

DRUGS (1)
  1. GEODON [Suspect]

REACTIONS (1)
  - CARDIAC FAILURE [None]
